FAERS Safety Report 7404982-5 (Version None)
Quarter: 2011Q2

REPORT INFORMATION
  Report Type: 
  Country: None (occurrence: None)
  Receive Date: 20110411
  Receipt Date: 20110330
  Transmission Date: 20111010
  Serious: Yes (Other)
  Sender: FDA-Public Use
  Company Number: CA-JNJFOC-20110312329

PATIENT
  Age: 2 Decade
  Sex: Male

DRUGS (2)
  1. STEROIDS NOS [Suspect]
     Indication: ILL-DEFINED DISORDER
     Route: 065
  2. CONCERTA [Suspect]
     Indication: ATTENTION DEFICIT/HYPERACTIVITY DISORDER
     Route: 048

REACTIONS (2)
  - DEPRESSION [None]
  - SUICIDE ATTEMPT [None]
